FAERS Safety Report 15984318 (Version 1)
Quarter: 2019Q1

REPORT INFORMATION
  Report Type: Spontaneous
  Country: FR (occurrence: FR)
  Receive Date: 20190220
  Receipt Date: 20190220
  Transmission Date: 20190418
  Serious: Yes (Hospitalization, Other)
  Sender: FDA-Public Use
  Company Number: FR-AUROBINDO-AUR-APL-2019-008725

PATIENT

DRUGS (4)
  1. TEMODAL [Suspect]
     Active Substance: TEMOZOLOMIDE
     Indication: GLIOBLASTOMA
     Dosage: UNK
     Route: 065
     Dates: start: 20181231, end: 20190104
  2. PARACETAMOL [Suspect]
     Active Substance: ACETAMINOPHEN
     Indication: PRODUCT USED FOR UNKNOWN INDICATION
     Dosage: 500 MILLIGRAM
     Route: 048
  3. MEDROL [Suspect]
     Active Substance: METHYLPREDNISOLONE
     Indication: GLIOBLASTOMA
     Dosage: UNK
     Route: 048
  4. XANAX [Suspect]
     Active Substance: ALPRAZOLAM
     Indication: PRODUCT USED FOR UNKNOWN INDICATION
     Dosage: 0.5 MILLIGRAM, DAILY
     Route: 048

REACTIONS (2)
  - Haematoma [Not Recovered/Not Resolved]
  - Thrombocytopenia [Recovering/Resolving]

NARRATIVE: CASE EVENT DATE: 201901
